FAERS Safety Report 16532331 (Version 2)
Quarter: 2019Q3

REPORT INFORMATION
  Report Type: Spontaneous
  Country: US (occurrence: US)
  Receive Date: 20190704
  Receipt Date: 20190813
  Transmission Date: 20191004
  Serious: Yes (Hospitalization)
  Sender: FDA-Public Use
  Company Number: US-PFIZER INC-2019264581

PATIENT
  Age: 48 Year
  Sex: Female
  Weight: 124.7 kg

DRUGS (2)
  1. DILANTIN [Suspect]
     Active Substance: PHENYTOIN
     Indication: SEIZURE
     Dosage: 300MG, TWICE A DAY (3 CAPSULES BID)
     Route: 048
  2. DILANTIN [Suspect]
     Active Substance: PHENYTOIN
     Dosage: 300 MG, 2X/DAY (300MG BY MOUTH IN THE MORNING AND 300MG AT NIGHT)
     Route: 048

REACTIONS (2)
  - Off label use [Unknown]
  - Pleurisy [Recovering/Resolving]
